FAERS Safety Report 9129556 (Version 2)
Quarter: 2013Q4

REPORT INFORMATION
  Report Type: Spontaneous
  Country: GB (occurrence: GB)
  Receive Date: 20130228
  Receipt Date: 20131107
  Transmission Date: 20140711
  Serious: Yes (Other)
  Sender: FDA-Public Use
  Company Number: GB-ELI_LILLY_AND_COMPANY-GB201302005622

PATIENT
  Age: 18 Year
  Sex: Male

DRUGS (10)
  1. FLUOXETINE [Suspect]
     Indication: ANXIETY
     Dosage: 20 MG, UNKNOWN
     Route: 048
     Dates: start: 20130123, end: 20130201
  2. FLUOXETINE [Suspect]
     Indication: AGGRESSION
  3. CIRCADIN [Concomitant]
  4. CLOBAZAM [Concomitant]
  5. DESMOPRESSIN [Concomitant]
  6. LORATADINE [Concomitant]
  7. MIDAZOLAM [Concomitant]
     Route: 002
  8. PIZOTIFEN [Concomitant]
  9. SODIUM VALPROATE [Concomitant]
  10. VENTOLIN                                /SCH/ [Concomitant]

REACTIONS (5)
  - Aggression [Recovered/Resolved]
  - Epistaxis [Recovered/Resolved]
  - Priapism [Recovered/Resolved]
  - Condition aggravated [Unknown]
  - Agitation [Recovering/Resolving]
